FAERS Safety Report 7321395-5 (Version None)
Quarter: 2011Q1

REPORT INFORMATION
  Report Type: 
  Country: None (occurrence: None)
  Receive Date: 20110223
  Receipt Date: 20110223
  Transmission Date: 20110831
  Serious: Yes (Hospitalization)
  Sender: FDA-Public Use
  Company Number: None

PATIENT
  Sex: Female
  Weight: 62.27 kg

DRUGS (2)
  1. TOPOTECAN [Suspect]
     Dosage: 2.97 MG
     Dates: end: 20110114
  2. TAXOL [Suspect]
     Dosage: 230 MG
     Dates: end: 20100112

REACTIONS (8)
  - PYREXIA [None]
  - DIZZINESS [None]
  - NECK PAIN [None]
  - ORTHOSTATIC HYPOTENSION [None]
  - NEUTROPHIL COUNT DECREASED [None]
  - HEADACHE [None]
  - ASTHENIA [None]
  - ADRENAL INSUFFICIENCY [None]
